FAERS Safety Report 11052378 (Version 1)
Quarter: 2015Q2

REPORT INFORMATION
  Report Type: Spontaneous
  Country: EE (occurrence: EE)
  Receive Date: 20150421
  Receipt Date: 20150421
  Transmission Date: 20150821
  Serious: Yes (Disabling)
  Sender: FDA-Public Use
  Company Number: EE-ASTRAZENECA-2015SE34898

PATIENT
  Age: 49 Year
  Sex: Female

DRUGS (2)
  1. BETALOC ZOK [Suspect]
     Active Substance: METOPROLOL SUCCINATE
     Indication: HYPERTENSION
     Dosage: 25 MG HALF A TABLET, IN THE MORNING
     Route: 048
  2. BETALOC ZOK [Suspect]
     Active Substance: METOPROLOL SUCCINATE
     Indication: HYPERTENSION
     Dosage: 25 MG HALF A TABLET, FIRST IN EVENING FOR A WEEK
     Route: 048

REACTIONS (5)
  - Head discomfort [Unknown]
  - Tinnitus [Unknown]
  - Blood pressure orthostatic abnormal [Not Recovered/Not Resolved]
  - Dizziness [Not Recovered/Not Resolved]
  - Pallor [Unknown]
